FAERS Safety Report 7916951-7 (Version None)
Quarter: 2011Q4

REPORT INFORMATION
  Report Type: 
  Country: None (occurrence: None)
  Receive Date: 20111114
  Receipt Date: 20111031
  Transmission Date: 20120403
  Serious: Yes (Other)
  Sender: FDA-Public Use
  Company Number: TIR-00726

PATIENT
  Age: 38 Year
  Sex: Female
  Weight: 92.3 kg

DRUGS (9)
  1. PROPRANOLOL [Suspect]
     Indication: HYPERTENSION
     Dosage: ORAL, DAILY
     Dates: end: 20110501
  2. ALISKIREN [Suspect]
     Dosage: 300 EVERY DAY
     Dates: start: 20110501
  3. GALVUS MET 50/850 (VILDAGLIPTIN 50 MG, METFORMIN 850 MG) [Suspect]
     Indication: BLOOD GLUCOSE
     Dosage: 1 TABLET, TWICE DAILY
     Dates: start: 20110501
  4. METFORMIN HCL [Concomitant]
  5. CRESTOR [Suspect]
     Indication: DYSLIPIDAEMIA
     Dosage: ORAL
     Route: 048
  6. LEVOTHYROXINE SODIUM [Suspect]
     Indication: AUTOIMMUNE THYROIDITIS
     Dosage: 50 MCG DAILY, 75 MCG, DAILY
  7. LANTUS [Concomitant]
  8. ASPARTAME [Concomitant]
  9. GLIMEPIRIDE [Concomitant]

REACTIONS (7)
  - HYPERGLYCAEMIA [None]
  - INSULIN RESISTANCE [None]
  - HYPOGLYCAEMIA [None]
  - WEIGHT INCREASED [None]
  - HYPERTENSION [None]
  - DYSLIPIDAEMIA [None]
  - BLOOD THYROID STIMULATING HORMONE INCREASED [None]
